FAERS Safety Report 6248107-0 (Version None)
Quarter: 2009Q2

REPORT INFORMATION
  Report Type: 
  Country: None (occurrence: None)
  Receive Date: 20090624
  Receipt Date: 20090624
  Transmission Date: 20091009
  Serious: Yes (Hospitalization)
  Sender: FDA-Public Use
  Company Number: None

PATIENT
  Sex: Female
  Weight: 97.0698 kg

DRUGS (1)
  1. LIDODERM [Suspect]
     Indication: EXTRACORPOREAL SHOCK WAVE THERAPY
     Dosage: 700MG
     Dates: start: 20081130, end: 20090505

REACTIONS (2)
  - OEDEMA MOUTH [None]
  - PRURITUS [None]
